FAERS Safety Report 6067359-3 (Version None)
Quarter: 2009Q1

REPORT INFORMATION
  Report Type: 
  Country: None (occurrence: None)
  Receive Date: 20090204
  Receipt Date: 20090204
  Transmission Date: 20090719
  Serious: Yes (Hospitalization)
  Sender: FDA-Public Use
  Company Number: None

PATIENT
  Age: 76 Year
  Sex: Male
  Weight: 89.5 kg

DRUGS (2)
  1. GLEEVEC [Suspect]
     Indication: SARCOMA
     Dosage: PO
     Route: 048
     Dates: start: 20081208, end: 20090128
  2. TAXOL [Suspect]
     Dosage: IV
     Route: 042
     Dates: start: 20081208, end: 20090121

REACTIONS (1)
  - FEBRILE NEUTROPENIA [None]
